FAERS Safety Report 7438272-1 (Version None)
Quarter: 2011Q2

REPORT INFORMATION
  Report Type: 
  Country: None (occurrence: None)
  Receive Date: 20110426
  Receipt Date: 20110125
  Transmission Date: 20111010
  Serious: Yes (Other)
  Sender: FDA-Public Use
  Company Number: US-BAYER-2010-003998

PATIENT
  Age: 23 Year
  Sex: Female
  Weight: 63.492 kg

DRUGS (1)
  1. MIRENA [Suspect]
     Indication: CONTRACEPTION
     Dosage: DAILY DOSE 20 ?G
     Route: 015
     Dates: start: 20101101, end: 20101215

REACTIONS (2)
  - DEVICE DISLOCATION [None]
  - COMPLICATION OF DEVICE INSERTION [None]
